FAERS Safety Report 9513873 (Version 1)
Quarter: 2013Q1

REPORT INFORMATION
  Report Type: Spontaneous
  Country: US (occurrence: None)
  Receive Date: 20130305
  Receipt Date: 20130305
  Transmission Date: 20140127
  Serious: Yes (Other)
  Sender: FDA-Public Use
  Company Number: 163-21880-12102447

PATIENT
  Age: 58 Year
  Sex: Female
  Weight: 44.9 kg

DRUGS (20)
  1. REVLIMID [Suspect]
     Indication: PLASMA CELL MYELOMA
     Dosage: 5 MG, 21 IN 21 D, PO
     Route: 048
     Dates: start: 20120818
  2. BABY ASPIRIN (ACETYLSALICYLIC ACID) (UNKNOWN) [Concomitant]
  3. ALBUTEROL INHALER (SALBUTAMOL) (UNKNOWN) [Concomitant]
  4. ATIVAN (LORAZEPAM) (UNKNOWN) [Concomitant]
  5. CITALOPRAM (CITALOPRAM) (UNKNOWN) [Concomitant]
  6. CLARITIN (LORATADINE) (UNKNOWN) [Concomitant]
  7. CLONIDE (CLONIDINE) (UNKNOWN) [Concomitant]
  8. COREG (CARVEDILOL) (UNKNOWN) [Concomitant]
  9. DEXAMETHASONE (DEXAMETHASONE) (UNKNOWN) [Concomitant]
  10. DILAUDID (HYDROMORPHONE HYDROCHLORIDE) (UNKNOWN) [Concomitant]
  11. FLUTICASONE (FLUTICASONE) (UNKNOWN) [Concomitant]
  12. LISINOPRIL (LISINOPRIL) (UNKNOWN) [Concomitant]
  13. METHADONE (METHADONE) (UNKNOWN) (METHADONE) [Concomitant]
  14. MIRAPEX (PRAMIPEXOLE DIHYDROCHLORIDE) (UNKNOWN) [Concomitant]
  15. NIFEDIPINE (NIFEDIPINE) (UNKNOWN) [Concomitant]
  16. RENAGEL (SEVELAMER HYDROCHLORIDE) (UNKNOWN) [Concomitant]
  17. SENNA (SENNA) (UNKNOWN) [Concomitant]
  18. SYNTHROID (LEVOTHYROXINE SODIUM) (UNKNOWN) [Concomitant]
  19. TEGRETOL XR (CARBAMAZEPINE) (UNKNOWN) [Concomitant]
  20. ZOFRAN (ONDANSETRON HYDROCHLORIDE) (UNKNOWN) [Concomitant]

REACTIONS (3)
  - Chest pain [None]
  - Dyspnoea [None]
  - Fatigue [None]
